FAERS Safety Report 8481312-1 (Version None)
Quarter: 2012Q3

REPORT INFORMATION
  Report Type: 
  Country: None (occurrence: None)
  Receive Date: 20120702
  Receipt Date: 20120626
  Transmission Date: 20120928
  Serious: Yes (Death)
  Sender: FDA-Public Use
  Company Number: CA-ELI_LILLY_AND_COMPANY-CA201206008878

PATIENT
  Age: 54 Year
  Sex: Female

DRUGS (10)
  1. PLAQUENIL [Concomitant]
  2. OXAZEPAM [Concomitant]
  3. AMITRIPTYLINE HCL [Concomitant]
  4. LYRICA [Concomitant]
  5. PANTOPRAZOLE [Concomitant]
  6. FORTEO [Suspect]
     Indication: OSTEOPOROSIS
     Dosage: 20 UG, QD
     Dates: start: 20100623
  7. MEDROL [Concomitant]
  8. FENTANYL [Concomitant]
  9. CALCIUM WITH VITAMIN D [Concomitant]
  10. SYNTHROID [Concomitant]

REACTIONS (1)
  - DEATH [None]
